FAERS Safety Report 9184317 (Version 1)
Quarter: 2012Q4

REPORT INFORMATION
  Report Type: 
  Country: US (occurrence: US)
  Receive Date: 20121031
  Receipt Date: 20121031
  Transmission Date: 20130627
  Serious: Yes (Life-Threatening, Hospitalization)
  Sender: FDA-Public Use
  Company Number: US-BAYER-2012-113653

PATIENT
  Age: 49 Year

DRUGS (11)
  1. YAZ [Suspect]
  2. YASMIN [Suspect]
     Dosage: UNK ;daily
     Route: 048
  3. AVELOX [Concomitant]
  4. SYMBICORT [Concomitant]
  5. PREDNISONE [Concomitant]
  6. LEVOPHED [Concomitant]
     Indication: HYPOTENSION
  7. EPINEPHRINE [Concomitant]
     Indication: HYPOTENSION
  8. DIURETICS [Concomitant]
  9. RENAL REPLACEMENT THERAPY [Concomitant]
  10. PEPCID [Concomitant]
  11. STRESS STRIODS [Concomitant]

REACTIONS (2)
  - Pulmonary embolism [None]
  - Cholelithiasis [None]
